FAERS Safety Report 5131604-9 (Version None)
Quarter: 2006Q4

REPORT INFORMATION
  Report Type: 
  Country: None (occurrence: None)
  Receive Date: 20061020
  Receipt Date: 20061012
  Transmission Date: 20070319
  Serious: Yes (Death)
  Sender: FDA-Public Use
  Company Number: US-ABBOTT-06P-163-0346734-00

PATIENT
  Age: 18 Year
  Sex: Female

DRUGS (3)
  1. ACETAMINOPHEN AND HYDROCODONE BITARTRATE [Suspect]
     Indication: SINUS HEADACHE
     Route: 065
  2. ACETAMINOPHEN AND HYDROCODONE BITARTRATE [Suspect]
     Indication: RENAL COLIC
  3. ACETAMINOPHEN AND HYDROCODONE BITARTRATE [Suspect]
     Indication: POSTOPERATIVE ANALGESIA

REACTIONS (13)
  - ANXIETY [None]
  - BRONCHIAL OBSTRUCTION [None]
  - BRONCHIECTASIS [None]
  - CHEST PAIN [None]
  - CHEST X-RAY ABNORMAL [None]
  - DIZZINESS [None]
  - DYSPNOEA [None]
  - EMBOLISM [None]
  - FALL [None]
  - PULMONARY ARTERY THROMBOSIS [None]
  - PULMONARY FUNCTION TEST DECREASED [None]
  - PULMONARY HYPERTENSION [None]
  - VASCULAR OCCLUSION [None]
